FAERS Safety Report 5309976-1 (Version None)
Quarter: 2007Q2

REPORT INFORMATION
  Report Type: 
  Country: None (occurrence: None)
  Receive Date: 20070427
  Receipt Date: 20070426
  Transmission Date: 20071010
  Serious: Yes (Other)
  Sender: FDA-Public Use
  Company Number: 2007AP02489

PATIENT
  Weight: 40 kg

DRUGS (1)
  1. MEROPENEM [Suspect]

REACTIONS (1)
  - HEPATITIS FULMINANT [None]
